FAERS Safety Report 17238141 (Version 1)
Quarter: 2020Q1

REPORT INFORMATION
  Report Type: Spontaneous
  Country: US (occurrence: US)
  Receive Date: 20200106
  Receipt Date: 20200106
  Transmission Date: 20200409
  Serious: No
  Sender: FDA-Public Use
  Company Number: US-PACIRA-201900325

PATIENT

DRUGS (3)
  1. EXPAREL [Suspect]
     Active Substance: BUPIVACAINE
     Indication: NERVE BLOCK
     Dosage: 133MG EXPAREL WITH 75MG OF BUPI HCL ADMIXED
     Route: 065
  2. EXPAREL [Suspect]
     Active Substance: BUPIVACAINE
     Indication: NERVE BLOCK
     Dosage: 133MG EXPAREL WITH 75MG OF BUPI HCL ADMIXED
     Route: 065
     Dates: start: 20191016, end: 20191016
  3. BUPIVACAINE HCL [Suspect]
     Active Substance: BUPIVACAINE HYDROCHLORIDE
     Indication: NERVE BLOCK
     Dosage: 133MG EXPAREL WITH 75MG OF BUPI HCL ADMIXED
     Route: 065

REACTIONS (1)
  - Drug ineffective [Not Recovered/Not Resolved]
